FAERS Safety Report 9891906 (Version 5)
Quarter: 2014Q1

REPORT INFORMATION
  Report Type: Spontaneous
  Country: US (occurrence: US)
  Receive Date: 20140212
  Receipt Date: 20140324
  Transmission Date: 20141002
  Serious: Yes (Hospitalization, Other)
  Sender: FDA-Public Use
  Company Number: US-009507513-1203USA02819

PATIENT
  Sex: Female
  Weight: 72.7 kg

DRUGS (9)
  1. FOSAMAX [Suspect]
     Indication: BONE DENSITY DECREASED
     Dosage: 70 MG, UNK
     Route: 048
     Dates: start: 2001, end: 2008
  2. FOSAMAX [Suspect]
     Indication: OSTEOPOROSIS
     Dosage: 10 MG, UNK
     Route: 048
     Dates: start: 1999, end: 2001
  3. FOSAMAX [Suspect]
     Dosage: 70 MG, UNK
     Route: 048
  4. ALENDRONATE SODIUM [Suspect]
     Indication: BONE DENSITY DECREASED
     Dosage: 70 MG, UNK
     Route: 048
     Dates: start: 2008, end: 2010
  5. THYROID [Concomitant]
  6. PREMPRO [Concomitant]
     Indication: OSTEOPOROSIS
  7. CALCIUM (UNSPECIFIED) [Concomitant]
     Indication: OSTEOPOROSIS
  8. VITAMIN D (UNSPECIFIED) [Concomitant]
     Indication: OSTEOPOROSIS
  9. ESTROGENS (UNSPECIFIED) [Concomitant]
     Indication: OSTEOPOROSIS

REACTIONS (22)
  - Femur fracture [Recovered/Resolved]
  - Intramedullary rod insertion [Recovered/Resolved]
  - Hip arthroplasty [Unknown]
  - Bursal operation [Unknown]
  - Anaemia postoperative [Unknown]
  - Spinal osteoarthritis [Unknown]
  - Radiculopathy [Unknown]
  - Sleep disorder [Unknown]
  - Joint effusion [Unknown]
  - Synovitis [Unknown]
  - Osteoarthritis [Unknown]
  - Spinal column stenosis [Unknown]
  - Hypertension [Unknown]
  - Haemorrhagic anaemia [Unknown]
  - Skin ulcer [Unknown]
  - Decubitus ulcer [Unknown]
  - Dermatitis contact [Unknown]
  - Back pain [Not Recovered/Not Resolved]
  - Arthralgia [Unknown]
  - Arthralgia [Unknown]
  - Muscle spasms [Unknown]
  - Oedema peripheral [Unknown]
